FAERS Safety Report 5739282-2 (Version None)
Quarter: 2008Q2

REPORT INFORMATION
  Report Type: 
  Country: None (occurrence: None)
  Receive Date: 20080515
  Receipt Date: 20080506
  Transmission Date: 20081010
  Serious: Yes (Other)
  Sender: FDA-Public Use
  Company Number: US-AMGEN-US278423

PATIENT
  Sex: Female
  Weight: 75.8 kg

DRUGS (12)
  1. ENBREL [Suspect]
     Indication: RHEUMATOID ARTHRITIS
     Route: 058
     Dates: start: 20070607, end: 20071204
  2. PLAQUENIL [Concomitant]
     Route: 048
     Dates: start: 20070309, end: 20070616
  3. VITAMIN TAB [Concomitant]
     Route: 048
     Dates: start: 20070401, end: 20071204
  4. ALBUTEROL [Concomitant]
     Route: 045
     Dates: start: 20070501, end: 20070515
  5. AMOXICILLIN [Concomitant]
     Route: 048
     Dates: start: 20070501, end: 20070515
  6. PREDNISONE TAB [Concomitant]
     Route: 048
     Dates: start: 20070309, end: 20070607
  7. PREDNISONE TAB [Concomitant]
     Route: 048
     Dates: start: 20070608, end: 20070616
  8. TYLENOL W/ CODEINE [Concomitant]
     Route: 048
     Dates: start: 20070506, end: 20070520
  9. TYLENOL [Concomitant]
     Route: 048
     Dates: start: 20070309, end: 20071015
  10. PERCOCET [Concomitant]
     Route: 048
     Dates: start: 20070309, end: 20070610
  11. OMEPRAZOLE [Concomitant]
     Route: 048
     Dates: start: 20070309, end: 20071204
  12. ROLAIDS [Concomitant]
     Route: 048
     Dates: start: 20070309, end: 20071204

REACTIONS (2)
  - BLEEDING PERIPARTUM [None]
  - GESTATIONAL DIABETES [None]
